FAERS Safety Report 10172006 (Version 1)
Quarter: 2014Q2

REPORT INFORMATION
  Report Type: Report from Study
  Country: KR (occurrence: KR)
  Receive Date: 20140515
  Receipt Date: 20140515
  Transmission Date: 20141212
  Serious: Yes (Hospitalization)
  Sender: FDA-Public Use
  Company Number: KR-TAKEDA-2014TJP005899

PATIENT
  Age: 79 Year
  Sex: Male
  Weight: 61 kg

DRUGS (9)
  1. ROFLUMILAST [Suspect]
     Indication: CHRONIC OBSTRUCTIVE PULMONARY DISEASE
     Dosage: 500 ?G, QD
     Route: 048
     Dates: start: 20140312
  2. LANSTON LFDT [Suspect]
     Indication: GASTRITIS PROPHYLAXIS
     Dosage: 15 MG, QD
     Route: 048
     Dates: start: 20140312
  3. ONBREZ [Concomitant]
     Indication: CHRONIC OBSTRUCTIVE PULMONARY DISEASE
     Dosage: 300 ?G, QD
     Route: 050
     Dates: start: 20131007
  4. ELDOPECT [Concomitant]
     Indication: CHRONIC OBSTRUCTIVE PULMONARY DISEASE
     Dosage: 600 MG, QD
     Route: 048
     Dates: start: 20140312, end: 20140318
  5. ALFUZON XL [Concomitant]
     Indication: HYPERTONIC BLADDER
     Dosage: 10 MG, QD
     Route: 048
     Dates: start: 20131122
  6. AVODART [Concomitant]
     Indication: BENIGN PROSTATIC HYPERPLASIA
     Dosage: 0.5 MG, QD
     Route: 048
     Dates: start: 20120421
  7. HERBEN [Concomitant]
     Indication: MYOCARDIAL BRIDGING
     Dosage: 180 MG, QD
     Route: 048
     Dates: start: 20120726
  8. SIGMART [Concomitant]
     Indication: MYOCARDIAL BRIDGING
     Dosage: 10 MG, QD
     Route: 048
     Dates: start: 20120814
  9. NITROGLYCERINE [Concomitant]
     Indication: MYOCARDIAL BRIDGING
     Dosage: 0.6 MG, QD
     Route: 048
     Dates: start: 20140114

REACTIONS (1)
  - Chronic obstructive pulmonary disease [Recovered/Resolved]
